FAERS Safety Report 8520819 (Version 2)
Quarter: 2012Q4

REPORT INFORMATION
  Report Type: 
  Country: US (occurrence: US)
  Receive Date: 20120419
  Receipt Date: 20121204
  Transmission Date: 20130627
  Serious: No
  Sender: FDA-Public Use
  Company Number: US-ASTRAZENECA-2012SE15247

PATIENT
  Age: 44 Year
  Sex: Female
  Weight: 72.6 kg

DRUGS (2)
  1. NEXIUM [Suspect]
     Indication: GASTROOESOPHAGEAL REFLUX DISEASE
     Route: 048
  2. THYROXIN [Concomitant]

REACTIONS (4)
  - Dyspepsia [Unknown]
  - Ulcer [Unknown]
  - Sleep disorder due to general medical condition, insomnia type [Unknown]
  - Intentional drug misuse [Unknown]
